FAERS Safety Report 9519999 (Version 1)
Quarter: 2013Q1

REPORT INFORMATION
  Report Type: Spontaneous
  Country: US (occurrence: None)
  Receive Date: 20130305
  Receipt Date: 20130305
  Transmission Date: 20140127
  Serious: No
  Sender: FDA-Public Use
  Company Number: 163-21880-11122216

PATIENT
  Age: 76 Year
  Sex: Female
  Weight: 64.86 kg

DRUGS (8)
  1. REVLIMID (LENALIDOMIDE) (CAPSULES) [Suspect]
     Indication: PLASMA CELL MYELOMA
     Dosage: 10MG, DAILY X 21 DAYS THEN OFF 7
     Route: 048
     Dates: start: 20110520
  2. CALCIUM 600 VITAMIN D (CALCIUM D3 STADA) (TABLETS) [Concomitant]
  3. DULCOLAX (BISACODYL) [Concomitant]
  4. VITAMIN D (ERGOCALCIFEROL) (CAPSULES) [Concomitant]
  5. MVI (VMI) (TABLETS) [Concomitant]
  6. TYLENOL EXTRA STRENGTH (PARACETAMOL) (TABLETS) [Concomitant]
  7. STOOL SOFTNER (DOCUSATE SODIUM) (TABLETS) [Concomitant]
  8. N-ACETYL (ACETYLCYSTEINE) [Concomitant]

REACTIONS (2)
  - Anaemia [None]
  - Thrombocytopenia [None]
